FAERS Safety Report 25763578 (Version 1)
Quarter: 2025Q3

REPORT INFORMATION
  Report Type: Spontaneous
  Country: US (occurrence: US)
  Receive Date: 20250905
  Receipt Date: 20250905
  Transmission Date: 20251021
  Serious: No
  Sender: DOMPE FARMACEUTICI
  Company Number: US-FARMAPROD-202410-3679

PATIENT
  Age: 81 Year
  Sex: Female

DRUGS (11)
  1. OXERVATE [Suspect]
     Active Substance: CENEGERMIN-BKBJ
     Indication: Neurotrophic keratopathy
     Route: 047
     Dates: start: 20241002, end: 202411
  2. OXERVATE [Suspect]
     Active Substance: CENEGERMIN-BKBJ
  3. CLEAR EYES NATURAL TEARS [Concomitant]
     Active Substance: POLYVINYL ALCOHOL\POVIDONE
  4. TRESIBA FLEXTOUCH U-200 [Concomitant]
  5. TRULICITY [Concomitant]
     Active Substance: DULAGLUTIDE
  6. ROSUVASTATIN CALCIUM [Concomitant]
     Active Substance: ROSUVASTATIN CALCIUM
  7. HYDROCHLOROTHIAZIDE [Concomitant]
     Active Substance: HYDROCHLOROTHIAZIDE
  8. NOVOLOG [Concomitant]
     Active Substance: INSULIN ASPART
  9. ASPIRIN [Concomitant]
     Active Substance: ASPIRIN
  10. VERAPAMIL HCL [Concomitant]
     Active Substance: VERAPAMIL HYDROCHLORIDE
  11. TRAVOPROST [Concomitant]
     Active Substance: TRAVOPROST

REACTIONS (3)
  - Eye discharge [Unknown]
  - Ocular hyperaemia [Unknown]
  - Eye swelling [Unknown]

NARRATIVE: CASE EVENT DATE: 20241202
